FAERS Safety Report 7247334-3 (Version None)
Quarter: 2011Q1

REPORT INFORMATION
  Report Type: 
  Country: None (occurrence: None)
  Receive Date: 20110127
  Receipt Date: 20110119
  Transmission Date: 20110831
  Serious: Yes (Hospitalization, Other)
  Sender: FDA-Public Use
  Company Number: B0696298A

PATIENT
  Sex: Male
  Weight: 94 kg

DRUGS (3)
  1. DILTIAZEM HCL [Concomitant]
     Indication: ARRHYTHMIA
     Route: 048
  2. RITMONORM [Suspect]
     Indication: ARRHYTHMIA
     Dosage: 300MG TWICE PER DAY
     Route: 048
     Dates: start: 20101214, end: 20101215
  3. SOTALOL HYDROCHLORIDE [Concomitant]
     Dosage: 80MG TWICE PER DAY

REACTIONS (6)
  - DYSPNOEA [None]
  - PULMONARY OEDEMA [None]
  - HYPOTENSION [None]
  - LUNG DISORDER [None]
  - TOTAL LUNG CAPACITY DECREASED [None]
  - LOSS OF CONSCIOUSNESS [None]
